FAERS Safety Report 9548786 (Version 1)
Quarter: 2013Q2

REPORT INFORMATION
  Report Type: Spontaneous
  Country: US (occurrence: None)
  Receive Date: 20130627
  Receipt Date: 20130627
  Transmission Date: 20140414
  Serious: Yes (Other)
  Sender: FDA-Public Use
  Company Number: 1000044395

PATIENT
  Age: 79 Year
  Sex: Male

DRUGS (4)
  1. LINZESS (LINACLOTIDE) (290 MICROGRAM, CAPSULES) [Suspect]
     Indication: CONSTIPATION
     Route: 048
     Dates: start: 20130413
  2. PROTONIX (PANTOPRAZOLE SODIUM SESQUIHYDRATE) [Concomitant]
  3. MTV (VITAMINS NOS) [Concomitant]
  4. ALPRAZOLAM [Concomitant]

REACTIONS (5)
  - Diarrhoea [None]
  - Feeling cold [None]
  - Dizziness [None]
  - Asthenia [None]
  - Headache [None]
